FAERS Safety Report 11778237 (Version 1)
Quarter: 2015Q4

REPORT INFORMATION
  Report Type: Spontaneous
  Country: US (occurrence: US)
  Receive Date: 20151125
  Receipt Date: 20151125
  Transmission Date: 20160304
  Serious: No
  Sender: FDA-Public Use
  Company Number: US-SHIRE-US201515563

PATIENT
  Sex: Female

DRUGS (1)
  1. LIALDA [Suspect]
     Active Substance: MESALAMINE
     Indication: COLITIS ULCERATIVE
     Dosage: 1.2 G, UNKNOWN
     Route: 048

REACTIONS (3)
  - Medication residue present [Not Recovered/Not Resolved]
  - Large intestine polyp [Unknown]
  - Diarrhoea [Not Recovered/Not Resolved]
